FAERS Safety Report 8262920-X (Version None)
Quarter: 2012Q2

REPORT INFORMATION
  Report Type: 
  Country: None (occurrence: None)
  Receive Date: 20120405
  Receipt Date: 20120326
  Transmission Date: 20120825
  Serious: Yes (Hospitalization, Other)
  Sender: FDA-Public Use
  Company Number: FR-GLAXOSMITHKLINE-B0792574A

PATIENT
  Age: 77 Year
  Sex: Male
  Weight: 97 kg

DRUGS (4)
  1. ARIXTRA [Suspect]
     Indication: THROMBOSIS PROPHYLAXIS
     Dosage: 5MG PER DAY
     Route: 058
     Dates: start: 20120319, end: 20120323
  2. ASPIRIN [Concomitant]
     Indication: PROPHYLAXIS
     Route: 048
  3. CRESTOR [Concomitant]
     Indication: HYPERCHOLESTEROLAEMIA
  4. EXFORGE [Concomitant]
     Indication: HYPERTENSION

REACTIONS (3)
  - INCISION SITE HAEMORRHAGE [None]
  - OVERDOSE [None]
  - HAEMATOMA [None]
